FAERS Safety Report 22039516 (Version 3)
Quarter: 2023Q2

REPORT INFORMATION
  Report Type: Report from Study
  Country: CA (occurrence: CA)
  Receive Date: 20230227
  Receipt Date: 20230515
  Transmission Date: 20230721
  Serious: Yes (Hospitalization, Other)
  Sender: FDA-Public Use
  Company Number: CA-JNJFOC-20230255867

PATIENT
  Age: 52 Year
  Sex: Male

DRUGS (3)
  1. STELARA [Suspect]
     Active Substance: USTEKINUMAB
     Indication: Colitis ulcerative
     Dosage: THERAPY START DATE: 30-MAR-2023
     Route: 058
     Dates: start: 20200903
  2. STELARA [Suspect]
     Active Substance: USTEKINUMAB
  3. ASPIRIN [Suspect]
     Active Substance: ASPIRIN
     Indication: Product used for unknown indication
     Route: 065

REACTIONS (6)
  - Atypical pneumonia [Recovered/Resolved]
  - Pneumonia aspiration [Recovering/Resolving]
  - NSAID exacerbated respiratory disease [Unknown]
  - Nasal polyps [Recovering/Resolving]
  - Asthma [Unknown]
  - Drug hypersensitivity [Unknown]

NARRATIVE: CASE EVENT DATE: 20230216
